FAERS Safety Report 12495173 (Version 31)
Quarter: 2022Q1

REPORT INFORMATION
  Report Type: Report from Study
  Country: CA (occurrence: CA)
  Receive Date: 20160624
  Receipt Date: 20220216
  Transmission Date: 20220423
  Serious: Yes (Hospitalization, Other)
  Sender: FDA-Public Use
  Company Number: PHHY2012CA115890

PATIENT
  Age: 70 Year
  Sex: Male

DRUGS (12)
  1. SANDOSTATIN LAR DEPOT [Suspect]
     Active Substance: OCTREOTIDE ACETATE
     Indication: Acromegaly
     Dosage: 40 MG, QMO, (ONCE A MONTH)
     Route: 030
     Dates: start: 20021031, end: 20180128
  2. SANDOSTATIN LAR DEPOT [Suspect]
     Active Substance: OCTREOTIDE ACETATE
     Dosage: 40 MG, QMO (ONCE A MONTH)
     Route: 030
     Dates: start: 20121112, end: 20180128
  3. SANDOSTATIN LAR DEPOT [Suspect]
     Active Substance: OCTREOTIDE ACETATE
     Dosage: 40 MG, Q4W (EVERY 4 WEEKS)
     Route: 030
     Dates: start: 20190409
  4. SANDOSTATIN LAR DEPOT [Suspect]
     Active Substance: OCTREOTIDE ACETATE
     Dosage: UNK
     Route: 030
     Dates: start: 20191021
  5. SANDOSTATIN LAR DEPOT [Suspect]
     Active Substance: OCTREOTIDE ACETATE
     Dosage: 20 MG, Q4W
     Route: 030
     Dates: start: 20081006
  6. PREDNISONE [Concomitant]
     Active Substance: PREDNISONE
     Indication: Product used for unknown indication
     Dosage: 5 MG, QD
     Route: 065
  7. RAMIPRIL [Concomitant]
     Active Substance: RAMIPRIL
     Indication: Product used for unknown indication
     Dosage: 5 MG
     Route: 065
     Dates: start: 2017, end: 2019
  8. METFORMIN [Concomitant]
     Active Substance: METFORMIN HYDROCHLORIDE
     Indication: Product used for unknown indication
     Dosage: 500 MG, BID
     Route: 065
     Dates: start: 2017
  9. METFORMIN [Concomitant]
     Active Substance: METFORMIN HYDROCHLORIDE
     Dosage: 850 MG, BID
     Route: 048
  10. GLICLAZIDE [Concomitant]
     Active Substance: GLICLAZIDE
     Indication: Product used for unknown indication
     Dosage: 30 MG, BID
     Route: 048
     Dates: start: 2017
  11. AMLODIPINE [Concomitant]
     Active Substance: AMLODIPINE BESYLATE
     Indication: Product used for unknown indication
     Dosage: 7.5 MG, QD
     Route: 048
     Dates: start: 2019
  12. CARDURA [Concomitant]
     Active Substance: DOXAZOSIN MESYLATE
     Indication: Product used for unknown indication
     Dosage: 1 MG, (AT BEDTIME)
     Route: 065
     Dates: start: 2017

REACTIONS (37)
  - Crohn^s disease [Unknown]
  - Intestinal obstruction [Unknown]
  - Bowel movement irregularity [Recovering/Resolving]
  - Abdominal pain [Unknown]
  - Dysstasia [Unknown]
  - Fall [Unknown]
  - Pain in extremity [Unknown]
  - Constipation [Recovering/Resolving]
  - Hip fracture [Unknown]
  - Glaucoma [Unknown]
  - Cystitis [Recovered/Resolved]
  - Dysuria [Recovered/Resolved]
  - Pollakiuria [Recovered/Resolved]
  - Micturition urgency [Recovered/Resolved]
  - Blood urine present [Recovered/Resolved]
  - Nephrolithiasis [Unknown]
  - Prostatomegaly [Unknown]
  - Neoplasm malignant [Recovered/Resolved]
  - Cataract [Unknown]
  - Pituitary enlargement [Unknown]
  - Blood pressure systolic increased [Unknown]
  - Blood pressure diastolic increased [Unknown]
  - Soft tissue injury [Unknown]
  - Contusion [Unknown]
  - Back pain [Recovering/Resolving]
  - Confusional state [Unknown]
  - Inguinal hernia [Unknown]
  - Pain [Unknown]
  - Pituitary cyst [Unknown]
  - Renal cyst [Unknown]
  - Sleep apnoea syndrome [Unknown]
  - Fatigue [Unknown]
  - Asthenia [Unknown]
  - Heart rate irregular [Unknown]
  - Injection site mass [Not Recovered/Not Resolved]
  - Injection site pain [Unknown]
  - Therapeutic product effect decreased [Unknown]

NARRATIVE: CASE EVENT DATE: 20140403
